FAERS Safety Report 4912895-3 (Version None)
Quarter: 2006Q1

REPORT INFORMATION
  Report Type: 
  Country: None (occurrence: None)
  Receive Date: 20060210
  Receipt Date: 20060202
  Transmission Date: 20060701
  Serious: Yes (Life-Threatening)
  Sender: FDA-Public Use
  Company Number: A0592342A

PATIENT
  Age: 22 Year
  Sex: Female
  Weight: 69.8539 kg

DRUGS (2)
  1. VENTOLIN [Suspect]
     Indication: ASTHMA
     Dosage: TWICE PER DAY / INHALED
     Route: 055
  2. FENOTEROL HYDROBROMIDE [Concomitant]

REACTIONS (3)
  - DYSPNOEA EXACERBATED [None]
  - MEDICAL DEVICE COMPLICATION [None]
  - PHARMACEUTICAL PRODUCT COMPLAINT [None]
